FAERS Safety Report 5799266-5 (Version None)
Quarter: 2008Q3

REPORT INFORMATION
  Report Type: 
  Country: None (occurrence: None)
  Receive Date: 20080702
  Receipt Date: 20080620
  Transmission Date: 20090109
  Serious: Yes (Other)
  Sender: FDA-Public Use
  Company Number: CL-PFIZER INC-2008048553

PATIENT
  Sex: Female

DRUGS (7)
  1. CHANTIX [Suspect]
     Indication: SMOKING CESSATION THERAPY
     Route: 048
  2. DESLORATADINE [Concomitant]
     Route: 048
  3. ESTRADIOL [Concomitant]
     Indication: MENOPAUSE
     Route: 048
  4. ESTRADIOL [Concomitant]
     Indication: HORMONE REPLACEMENT THERAPY
  5. OMEPRAZOLE [Concomitant]
     Indication: ULCER
     Route: 048
  6. DROSPIRENONE [Concomitant]
     Indication: MENOPAUSE
     Route: 048
  7. DROSPIRENONE [Concomitant]
     Indication: HORMONE REPLACEMENT THERAPY

REACTIONS (3)
  - BRONCHITIS [None]
  - FATIGUE [None]
  - PNEUMONITIS [None]
